FAERS Safety Report 11717713 (Version 1)
Quarter: 2015Q4

REPORT INFORMATION
  Report Type: Spontaneous
  Country: GB (occurrence: GB)
  Receive Date: 20151110
  Receipt Date: 20151110
  Transmission Date: 20160304
  Serious: Yes (Other)
  Sender: FDA-Public Use
  Company Number: GB-ACCORD-035156

PATIENT
  Sex: Female
  Weight: 70 kg

DRUGS (8)
  1. CANDESARTAN [Concomitant]
     Active Substance: CANDESARTAN
  2. PROPIVERINE [Concomitant]
     Active Substance: PROPIVERINE
  3. ZOPICLONE [Concomitant]
     Active Substance: ZOPICLONE
  4. TRAMADOL. [Concomitant]
     Active Substance: TRAMADOL
  5. AMITRIPTYLINE [Suspect]
     Active Substance: AMITRIPTYLINE
     Indication: NEURALGIA
     Route: 048
     Dates: start: 20150916, end: 20150916
  6. CITALOPRAM [Concomitant]
     Active Substance: CITALOPRAM HYDROBROMIDE
  7. CLOPIDOGREL [Concomitant]
     Active Substance: CLOPIDOGREL BISULFATE
  8. LERCANIDIPINE [Concomitant]
     Active Substance: LERCANIDIPINE

REACTIONS (7)
  - Tremor [Recovered/Resolved]
  - Balance disorder [Recovered/Resolved]
  - Feeling abnormal [Recovered/Resolved]
  - Hallucinations, mixed [Recovered/Resolved]
  - Off label use [Unknown]
  - Nightmare [Recovered/Resolved]
  - Dizziness [Recovered/Resolved]

NARRATIVE: CASE EVENT DATE: 20150916
